FAERS Safety Report 15256567 (Version 1)
Quarter: 2018Q3

REPORT INFORMATION
  Report Type: Spontaneous
  Country: US (occurrence: US)
  Receive Date: 20180718
  Receipt Date: 20180718
  Transmission Date: 20181010
  Serious: Yes (Life-Threatening, Disabling, Other)
  Sender: FDA-Public Use
  Company Number: None

PATIENT
  Age: 47 Year
  Sex: Male
  Weight: 133.2 kg

DRUGS (1)
  1. LEVOFLOXACIN. [Suspect]
     Active Substance: LEVOFLOXACIN
     Indication: SINUSITIS
     Dosage: ?          QUANTITY:7 TABLET(S);?
     Route: 048
     Dates: start: 20171222, end: 20171228

REACTIONS (19)
  - Arthralgia [None]
  - Muscle spasms [None]
  - Impaired quality of life [None]
  - Mobility decreased [None]
  - Musculoskeletal pain [None]
  - Plantar fasciitis [None]
  - Sleep disorder [None]
  - Loss of personal independence in daily activities [None]
  - Neuropathy peripheral [None]
  - Balance disorder [None]
  - Fall [None]
  - Pain in extremity [None]
  - Tendonitis [None]
  - Contusion [None]
  - Headache [None]
  - Visual impairment [None]
  - Tendon rupture [None]
  - Photophobia [None]
  - Restlessness [None]

NARRATIVE: CASE EVENT DATE: 20171226
